FAERS Safety Report 17293546 (Version 1)
Quarter: 2020Q1

REPORT INFORMATION
  Report Type: Spontaneous
  Country: US (occurrence: US)
  Receive Date: 20200121
  Receipt Date: 20200121
  Transmission Date: 20200409
  Serious: Yes (Life-Threatening, Hospitalization, Other)
  Sender: FDA-Public Use
  Company Number: US-ALVOGEN-2020-ALVOGEN-102377

PATIENT
  Age: 25 Year
  Sex: Male

DRUGS (2)
  1. OXYCODONE [Suspect]
     Active Substance: OXYCODONE
     Indication: PRODUCT USED FOR UNKNOWN INDICATION
     Dosage: CRUSHING OXYCODONE AND INJECTING IT IN PERIPHERALLY-INSERTED CENTRAL VENOUS CATHETER
  2. METHADONE [Concomitant]
     Active Substance: METHADONE HYDROCHLORIDE
     Indication: ABDOMINAL PAIN

REACTIONS (9)
  - Septic shock [Unknown]
  - Streptococcal bacteraemia [Unknown]
  - Wrong technique in product usage process [Unknown]
  - Lung infiltration [Unknown]
  - Right ventricular systolic pressure increased [Unknown]
  - Acute respiratory distress syndrome [Unknown]
  - Arteritis [Unknown]
  - Respiratory failure [Unknown]
  - Pulmonary granuloma [Unknown]
